FAERS Safety Report 22986759 (Version 7)
Quarter: 2024Q1

REPORT INFORMATION
  Report Type: Spontaneous
  Country: US (occurrence: US)
  Receive Date: 20230926
  Receipt Date: 20240119
  Transmission Date: 20240409
  Serious: Yes (Other)
  Sender: FDA-Public Use
  Company Number: US-PFIZER INC-PV202300160749

PATIENT
  Age: 42 Year
  Sex: Female

DRUGS (1)
  1. IBRANCE [Suspect]
     Active Substance: PALBOCICLIB
     Dosage: 125 MG

REACTIONS (11)
  - Laryngitis bacterial [Unknown]
  - Product storage error [Unknown]
  - Arthropod bite [Not Recovered/Not Resolved]
  - Back pain [Recovering/Resolving]
  - Pain [Recovering/Resolving]
  - Stomatitis [Not Recovered/Not Resolved]
  - Myalgia [Recovered/Resolved]
  - Viral upper respiratory tract infection [Unknown]
  - Illness [Unknown]
  - Fatigue [Unknown]
  - Nasopharyngitis [Unknown]

NARRATIVE: CASE EVENT DATE: 20231030
